FAERS Safety Report 24065129 (Version 2)
Quarter: 2024Q3

REPORT INFORMATION
  Report Type: Spontaneous
  Country: JP (occurrence: JP)
  Receive Date: 20240709
  Receipt Date: 20240819
  Transmission Date: 20241017
  Serious: Yes (Other)
  Sender: BRISTOL MYERS SQUIBB
  Company Number: JP-BRISTOL-MYERS SQUIBB COMPANY-2024-107248

PATIENT

DRUGS (5)
  1. ORENCIA [Suspect]
     Active Substance: ABATACEPT
     Indication: Rheumatoid arthritis
     Route: 058
  2. BUCILLAMINE [Suspect]
     Active Substance: BUCILLAMINE
     Indication: Rheumatoid arthritis
  3. IGURATIMOD [Suspect]
     Active Substance: IGURATIMOD
     Indication: Rheumatoid arthritis
  4. SULFASALAZINE [Suspect]
     Active Substance: SULFASALAZINE
     Indication: Rheumatoid arthritis
  5. UNSPECIFIED INGREDIENT [Concomitant]
     Active Substance: UNSPECIFIED INGREDIENT
     Indication: Rheumatoid arthritis

REACTIONS (1)
  - Lymphoma [Unknown]
